FAERS Safety Report 18354984 (Version 1)
Quarter: 2020Q4

REPORT INFORMATION
  Report Type: Spontaneous
  Country: US (occurrence: US)
  Receive Date: 20201006
  Receipt Date: 20201006
  Transmission Date: 20210114
  Serious: Yes (Hospitalization)
  Sender: FDA-Public Use
  Company Number: None

PATIENT
  Age: 71 Year
  Sex: Male

DRUGS (3)
  1. CARBOPLATIN (CARBOPLATIN 450MG/VIL INJ) [Suspect]
     Active Substance: CARBOPLATIN
     Dates: start: 20200901, end: 20200901
  2. WARFARIN (WARFARIN NA (GOLDEN STATE) 2MG TAB ) [Suspect]
     Active Substance: WARFARIN SODIUM
     Indication: MITRAL VALVE REPLACEMENT
     Route: 042
     Dates: start: 20120229
  3. WARFARIN (WARFARIN NA (GOLDEN STATE) 2MG TAB ) [Suspect]
     Active Substance: WARFARIN SODIUM
     Indication: ATRIAL FIBRILLATION
     Route: 042
     Dates: start: 20120229

REACTIONS (3)
  - Gastrointestinal haemorrhage [None]
  - International normalised ratio abnormal [None]
  - Therapy interrupted [None]

NARRATIVE: CASE EVENT DATE: 20200919
